FAERS Safety Report 4518687-1 (Version None)
Quarter: 2004Q4

REPORT INFORMATION
  Report Type: 
  Country: None (occurrence: None)
  Receive Date: 20041201
  Receipt Date: 20041116
  Transmission Date: 20050328
  Serious: Yes (Life-Threatening, Hospitalization, Disabling)
  Sender: FDA-Public Use
  Company Number: THQ2004A00331

PATIENT
  Age: 73 Year
  Sex: Male

DRUGS (8)
  1. PIOGLITAZONE HCL [Suspect]
     Indication: DIABETES MELLITUS
     Dosage: 15 MG (1 D)  PER ORAL
     Route: 048
     Dates: start: 20030531, end: 20040502
  2. ASPIRIN 10GR TIMED DISINTEGRATION TAB [Concomitant]
  3. LIPITOR [Concomitant]
  4. RAMIPRIL [Concomitant]
  5. GLICLAZIDE [Concomitant]
  6. METFORMIN HCL [Concomitant]
  7. ACARBOSE [Concomitant]
  8. EZETIMIBE [Concomitant]

REACTIONS (7)
  - BLADDER NEOPLASM [None]
  - HYPOTENSION [None]
  - NEOPLASM RECURRENCE [None]
  - POST PROCEDURAL COMPLICATION [None]
  - RENAL FAILURE ACUTE [None]
  - URINARY RETENTION [None]
  - UROSEPSIS [None]
